FAERS Safety Report 23920935 (Version 1)
Quarter: 2024Q2

REPORT INFORMATION
  Report Type: Spontaneous
  Country: CN (occurrence: CN)
  Receive Date: 20240530
  Receipt Date: 20240530
  Transmission Date: 20240716
  Serious: Yes (Other)
  Sender: FDA-Public Use
  Company Number: CN-009507513-2405CHN007807

PATIENT
  Age: 89 Year
  Sex: Male
  Weight: 50 kg

DRUGS (5)
  1. CILASTATIN SODIUM\IMIPENEM [Suspect]
     Active Substance: CILASTATIN SODIUM\IMIPENEM
     Indication: Septic shock
     Dosage: 0.5G, BID
     Route: 041
     Dates: start: 20240327, end: 20240410
  2. CILASTATIN SODIUM\IMIPENEM [Suspect]
     Active Substance: CILASTATIN SODIUM\IMIPENEM
     Dosage: 0.5G, QD
     Route: 042
     Dates: start: 2024
  3. VANCOCIN [Concomitant]
     Active Substance: VANCOMYCIN HYDROCHLORIDE
     Indication: Septic shock
     Dosage: 0.5G, BID
     Route: 041
     Dates: start: 20240329, end: 20240411
  4. SODIUM CHLORIDE [Concomitant]
     Active Substance: SODIUM CHLORIDE
     Dosage: 100ML, BID
     Route: 041
     Dates: start: 20240327, end: 20240410
  5. SODIUM CHLORIDE [Concomitant]
     Active Substance: SODIUM CHLORIDE
     Dosage: 100ML, QD
     Route: 042
     Dates: start: 2024

REACTIONS (2)
  - Epilepsy [Recovered/Resolved]
  - Inappropriate schedule of product administration [Unknown]

NARRATIVE: CASE EVENT DATE: 20240101
